FAERS Safety Report 10084729 (Version 1)
Quarter: 2014Q2

REPORT INFORMATION
  Report Type: Spontaneous
  Country: US (occurrence: US)
  Receive Date: 20140417
  Receipt Date: 20140417
  Transmission Date: 20141212
  Serious: No
  Sender: FDA-Public Use
  Company Number: US-BAYER-2014-057684

PATIENT
  Sex: Female

DRUGS (1)
  1. GADAVIST [Suspect]
     Indication: NUCLEAR MAGNETIC RESONANCE IMAGING BRAIN
     Dosage: 5 ML, UNK
     Route: 042
     Dates: start: 20140414, end: 20140414

REACTIONS (4)
  - Nausea [Recovered/Resolved]
  - Heart rate increased [Recovered/Resolved]
  - Dyspnoea [None]
  - Vomiting [Recovered/Resolved]
